FAERS Safety Report 5542471-3 (Version None)
Quarter: 2007Q4

REPORT INFORMATION
  Report Type: 
  Country: None (occurrence: None)
  Receive Date: 20071210
  Receipt Date: 20071128
  Transmission Date: 20080405
  Serious: Yes (Other)
  Sender: FDA-Public Use
  Company Number: US-SANOFI-SYNTHELABO-A03200706732

PATIENT
  Sex: Male

DRUGS (8)
  1. LIPITOR [Concomitant]
     Route: 048
  2. LANTUS [Concomitant]
     Route: 058
  3. HUMALOG [Concomitant]
     Dosage: SLIDING SCALE ABOUT 8 UNITS PER MEAL
     Route: 058
  4. ZETIA [Concomitant]
     Route: 048
  5. ECOTRIN [Concomitant]
     Route: 048
  6. COREG [Concomitant]
     Route: 048
  7. MICARDIS [Concomitant]
     Dosage: UNK
     Route: 048
  8. PLAVIX [Suspect]
     Indication: VASCULAR GRAFT
     Route: 048
     Dates: start: 19970101

REACTIONS (2)
  - BLOOD CREATINE PHOSPHOKINASE INCREASED [None]
  - MUSCULAR WEAKNESS [None]
